FAERS Safety Report 7820674-2 (Version None)
Quarter: 2011Q4

REPORT INFORMATION
  Report Type: 
  Country: None (occurrence: None)
  Receive Date: 20111013
  Receipt Date: 20110930
  Transmission Date: 20120403
  Serious: Yes (Death)
  Sender: FDA-Public Use
  Company Number: ABR_00233_2011

PATIENT
  Sex: Female
  Weight: 27.5 kg

DRUGS (13)
  1. CLARITHROMYCIN [Suspect]
     Indication: BRONCHIOLITIS
     Dosage: (200 MG (200 MG, 1 IN 1 D) ORAL), (800 MG, 800 G (400 MG , 2 IN 1 D), ORAL
     Route: 048
     Dates: start: 20060630, end: 20060918
  2. CLARITHROMYCIN [Suspect]
     Indication: BRONCHIOLITIS
     Dosage: (200 MG (200 MG, 1 IN 1 D) ORAL), (800 MG, 800 G (400 MG , 2 IN 1 D), ORAL
     Route: 048
     Dates: start: 20060919, end: 20061016
  3. RYTHMODAN /00271801/ (RYTHMODAN) (NOT SPECIFIED) [Suspect]
     Indication: SUPRAVENTRICULAR TACHYCARDIA
     Dosage: (300 MG, 300 MG (100 MG, 3 IN 1 D) ORAL)
     Route: 048
     Dates: end: 20061016
  4. ZOLPIDEM TARTRATE [Concomitant]
  5. RABEPRAZOLE SODIUM [Concomitant]
  6. ACARDI (ACARDI) (NOT SPECIFIED) [Suspect]
     Indication: CARDIAC FAILURE CHRONIC
     Dosage: (5 MG, 5 MG ( 2.5 MG, 2 IN 1 D) ORAL)
     Route: 048
     Dates: end: 20061016
  7. FUROSEMIDE [Concomitant]
  8. ISOSORBIDE DINITRATE [Concomitant]
  9. RADIOTHERAPY [Concomitant]
  10. THEOPHYLLINE [Concomitant]
  11. URSODIOL [Concomitant]
  12. TIOTROPIUM BROMID MONOHYDRATE [Concomitant]
  13. ERYTHROCIN [Suspect]
     Indication: BRONCHIOLITIS
     Dosage: (600 MG, 600 MG (200 MG, 3 IN 1 D), ORAL
     Route: 048
     Dates: start: 19920101, end: 20060629

REACTIONS (11)
  - OBSTRUCTIVE AIRWAYS DISORDER [None]
  - RESPIRATORY FAILURE [None]
  - ARRHYTHMIA [None]
  - BLOOD POTASSIUM DECREASED [None]
  - VENTRICULAR TACHYCARDIA [None]
  - UTERINE CANCER [None]
  - CHEST PAIN [None]
  - RESPIRATORY ARREST [None]
  - COR PULMONALE [None]
  - DEPRESSED LEVEL OF CONSCIOUSNESS [None]
  - ELECTROLYTE IMBALANCE [None]
